FAERS Safety Report 19382118 (Version 2)
Quarter: 2021Q3

REPORT INFORMATION
  Report Type: Spontaneous
  Country: US (occurrence: US)
  Receive Date: 20210607
  Receipt Date: 20210818
  Transmission Date: 20211014
  Serious: No
  Sender: FDA-Public Use
  Company Number: US-BIOFRONTERA-000740

PATIENT
  Age: 85 Year
  Sex: Male

DRUGS (4)
  1. TOPICAL ANAESTHESIA CREAM [Concomitant]
  2. HEAD AND SHOULDERS [Concomitant]
     Active Substance: PYRITHIONE ZINC
  3. AMELUZ [Suspect]
     Active Substance: AMINOLEVULINIC ACID HYDROCHLORIDE
     Indication: ACTINIC KERATOSIS
     Route: 061
  4. EFUDEX [Concomitant]
     Active Substance: FLUOROURACIL

REACTIONS (2)
  - Hair colour changes [Recovered/Resolved]
  - Off label use [Recovered/Resolved]

NARRATIVE: CASE EVENT DATE: 20210503
